FAERS Safety Report 9537750 (Version 1)
Quarter: 2013Q3

REPORT INFORMATION
  Report Type: Spontaneous
  Country: FR (occurrence: FR)
  Receive Date: 20130919
  Receipt Date: 20130919
  Transmission Date: 20140515
  Serious: Yes (Hospitalization, Other)
  Sender: FDA-Public Use
  Company Number: FR-009507513-1309FRA004600

PATIENT
  Age: 74 Year
  Sex: Male

DRUGS (10)
  1. INEGY [Suspect]
     Dosage: UNK
     Route: 048
     Dates: end: 20130817
  2. ZYLORIC [Suspect]
     Dosage: UNK
     Route: 048
     Dates: start: 201304, end: 20130711
  3. TWYNSTA [Suspect]
     Dosage: UNK
     Route: 048
     Dates: end: 20130817
  4. KARDEGIC [Concomitant]
     Dosage: 75 MG, QAM
  5. ATARAX (ALPRAZOLAM) [Concomitant]
     Dosage: 50 MG, QPM
  6. AERIUS [Concomitant]
     Dosage: 3 DF, QD
  7. STILNOX [Concomitant]
     Dosage: 1 DF, UNK
  8. LEXOMIL [Concomitant]
     Dosage: 0.5 DF, QPM
  9. SECTRAL [Concomitant]
     Dosage: 200 MG, QD
  10. DIPROSALIC [Concomitant]
     Route: 061

REACTIONS (6)
  - Drug reaction with eosinophilia and systemic symptoms [Recovered/Resolved]
  - General physical health deterioration [Recovered/Resolved]
  - Lymphopenia [Recovered/Resolved]
  - Pruritus [Recovered/Resolved]
  - Eosinophilia [Recovered/Resolved]
  - Rash morbilliform [Recovered/Resolved]
